FAERS Safety Report 21626228 (Version 1)
Quarter: 2022Q4

REPORT INFORMATION
  Report Type: Spontaneous
  Country: US (occurrence: US)
  Receive Date: 20221122
  Receipt Date: 20221122
  Transmission Date: 20230113
  Serious: No
  Sender: FDA-Public Use
  Company Number: US-INSMED, INC.-2022-01909-US

PATIENT
  Sex: Male

DRUGS (2)
  1. ARIKAYCE [Suspect]
     Active Substance: AMIKACIN
     Indication: Bronchiectasis
     Dosage: 590 MILLIGRAM, TIW
     Route: 055
     Dates: start: 20220623, end: 20220704
  2. ARIKAYCE [Suspect]
     Active Substance: AMIKACIN
     Dosage: 590 MILLIGRAM, QD
     Route: 055
     Dates: start: 20220705, end: 202207

REACTIONS (7)
  - Muscle disorder [Unknown]
  - Respiratory tract irritation [Unknown]
  - Aphonia [Unknown]
  - Asthenia [Unknown]
  - Bronchospasm [Unknown]
  - Dysphonia [Unknown]
  - Off label use [Unknown]

NARRATIVE: CASE EVENT DATE: 20220101
